FAERS Safety Report 23231725 (Version 1)
Quarter: 2023Q4

REPORT INFORMATION
  Report Type: Spontaneous
  Country: US (occurrence: None)
  Receive Date: 20231125
  Receipt Date: 20231125
  Transmission Date: 20240110
  Serious: No
  Sender: FDA-Public Use
  Company Number: None

PATIENT
  Age: 2 Year
  Sex: 0
  Weight: 12.15 kg

DRUGS (2)
  1. PAIN AND FEVER INFANTS [Suspect]
     Active Substance: ACETAMINOPHEN
     Indication: Pyrexia
     Dates: start: 20231018, end: 20231122
  2. PAIN AND FEVER INFANTS [Suspect]
     Active Substance: ACETAMINOPHEN
     Indication: Nasopharyngitis

REACTIONS (3)
  - Abdominal pain upper [None]
  - Vomiting [None]
  - Cough [None]

NARRATIVE: CASE EVENT DATE: 20231024
